FAERS Safety Report 7534475-6 (Version None)
Quarter: 2011Q2

REPORT INFORMATION
  Report Type: 
  Country: None (occurrence: None)
  Receive Date: 20110609
  Receipt Date: 20110526
  Transmission Date: 20111010
  Serious: Yes (Other)
  Sender: FDA-Public Use
  Company Number: PHHY2010DE79691

PATIENT
  Sex: Male
  Weight: 99 kg

DRUGS (6)
  1. AVASTIN [Concomitant]
     Indication: METASTASES TO LYMPH NODES
  2. ZOMETA [Suspect]
     Indication: PROSTATE CANCER
     Dosage: 4 MG/5 ML,EVERY 4 WEEKS
     Route: 042
     Dates: start: 20071220, end: 20081211
  3. INTERFERON [Concomitant]
     Indication: METASTASES TO LYMPH NODES
  4. ZOMETA [Suspect]
     Indication: METASTASES TO BONE
     Dosage: 4 MG, EVERY 4 WEEKS
     Route: 042
     Dates: end: 20090811
  5. AVASTIN [Concomitant]
     Indication: RENAL CANCER
     Dosage: 990 MG / 14 D
     Route: 042
     Dates: start: 20090128, end: 20100204
  6. INTERFERON [Concomitant]
     Indication: RENAL CANCER

REACTIONS (3)
  - ERYTHEMA [None]
  - OSTEONECROSIS OF JAW [None]
  - SWELLING FACE [None]
